FAERS Safety Report 7148756-1 (Version None)
Quarter: 2010Q4

REPORT INFORMATION
  Report Type: 
  Country: None (occurrence: None)
  Receive Date: 20101209
  Receipt Date: 20101130
  Transmission Date: 20110411
  Serious: Yes (Hospitalization)
  Sender: FDA-Public Use
  Company Number: US-ROCHE-746804

PATIENT
  Sex: Female
  Weight: 57.2 kg

DRUGS (2)
  1. CAPECITABINE [Suspect]
     Indication: BREAST CANCER
     Dosage: 1450 UNK, BID
     Route: 048
     Dates: start: 20100301, end: 20101122
  2. LAPATINIB [Suspect]
     Indication: BREAST CANCER
     Dosage: 1250 UNK, QD
     Route: 048
     Dates: start: 20100301, end: 20101128

REACTIONS (1)
  - HYPONATRAEMIA [None]
